FAERS Safety Report 13823120 (Version 1)
Quarter: 2017Q3

REPORT INFORMATION
  Report Type: Spontaneous
  Country: LU (occurrence: LU)
  Receive Date: 20170801
  Receipt Date: 20170801
  Transmission Date: 20171127
  Serious: No
  Sender: FDA-Public Use
  Company Number: LU-009507513-1707LUX009983

PATIENT
  Sex: Female

DRUGS (3)
  1. ELOCOM [Suspect]
     Active Substance: MOMETASONE FUROATE
     Indication: ERYTHEMA OF EYELID
     Dosage: UNK
     Route: 061
     Dates: start: 201707
  2. ELOCOM [Suspect]
     Active Substance: MOMETASONE FUROATE
     Indication: EYELID OEDEMA
     Dosage: UNK
     Route: 061
     Dates: start: 2007
  3. ELOCOM [Suspect]
     Active Substance: MOMETASONE FUROATE
     Indication: EYELIDS PRURITUS

REACTIONS (5)
  - Eye disorder [Unknown]
  - Off label use [Unknown]
  - Incorrect route of drug administration [Unknown]
  - Incorrect route of drug administration [Unknown]
  - Intentional product misuse [Unknown]

NARRATIVE: CASE EVENT DATE: 2007
